FAERS Safety Report 9704047 (Version 1)
Quarter: 2013Q4

REPORT INFORMATION
  Report Type: Spontaneous
  Country: US (occurrence: US)
  Receive Date: 20131122
  Receipt Date: 20131122
  Transmission Date: 20140711
  Serious: Yes (Other)
  Sender: FDA-Public Use
  Company Number: US-PFIZER INC-2013330584

PATIENT
  Age: 71 Year
  Sex: Male

DRUGS (2)
  1. SUTENT [Suspect]
     Dosage: 50 MG, CYCLIC
     Dates: start: 201303
  2. SUTENT [Suspect]
     Dosage: 37.5 MG, CYCLIC (2 WEEKS ON AND 1 WEEK OFF)

REACTIONS (3)
  - Adrenocortical insufficiency acute [Unknown]
  - Diarrhoea [Unknown]
  - Stomatitis [Unknown]
